FAERS Safety Report 14127246 (Version 1)
Quarter: 2017Q4

REPORT INFORMATION
  Report Type: Spontaneous
  Country: GB (occurrence: GB)
  Receive Date: 20171026
  Receipt Date: 20171026
  Transmission Date: 20180321
  Serious: Yes (Other)
  Sender: FDA-Public Use
  Company Number: GB-ACCORD-060091

PATIENT
  Age: 86 Year
  Sex: Male

DRUGS (2)
  1. ASPIRIN. [Concomitant]
     Active Substance: ASPIRIN
     Route: 048
  2. FINASTERIDE. [Suspect]
     Active Substance: FINASTERIDE
     Indication: PROSTATOMEGALY
     Route: 048

REACTIONS (4)
  - Fatigue [Unknown]
  - Product use in unapproved indication [Unknown]
  - Micturition urgency [Unknown]
  - Bladder cancer stage 0, with cancer in situ [Unknown]
